FAERS Safety Report 15192795 (Version 3)
Quarter: 2018Q3

REPORT INFORMATION
  Report Type: Report from Study
  Country: None (occurrence: GB)
  Receive Date: 20180725
  Receipt Date: 20180814
  Transmission Date: 20181010
  Serious: Yes (Hospitalization)
  Sender: FDA-Public Use
  Company Number: GB-ABBVIE-18S-167-2427697-00

PATIENT
  Age: 62 Year
  Sex: Male

DRUGS (2)
  1. DUODOPA [Suspect]
     Active Substance: CARBIDOPA\LEVODOPA
     Indication: PARKINSON^S DISEASE
     Route: 061
  2. DUODOPA [Suspect]
     Active Substance: CARBIDOPA\LEVODOPA
     Dosage: 1 CASSETTE DAILY
     Route: 050
     Dates: start: 20180719

REACTIONS (7)
  - Intra-abdominal fluid collection [Unknown]
  - Intestinal perforation [Recovering/Resolving]
  - Device issue [Unknown]
  - Hernia [Recovering/Resolving]
  - Device leakage [Unknown]
  - Restlessness [Unknown]
  - Peritonitis [Unknown]

NARRATIVE: CASE EVENT DATE: 201808
